FAERS Safety Report 24408438 (Version 1)
Quarter: 2024Q4

REPORT INFORMATION
  Report Type: Spontaneous
  Country: US (occurrence: US)
  Receive Date: 20241007
  Receipt Date: 20241007
  Transmission Date: 20250115
  Serious: No
  Sender: RARE DISEASE THERAPEUTICS
  Company Number: US-Rare Disease Therapeutics, Inc.-2162591

PATIENT
  Age: 42 Year

DRUGS (1)
  1. ANAVIP [Suspect]
     Active Substance: PIT VIPER (CROTALINAE) IMMUNE GLOBULIN ANTIVENIN (EQUINE)

REACTIONS (3)
  - Urticaria [Unknown]
  - Respiratory distress [Unknown]
  - Hypotension [Unknown]
